FAERS Safety Report 6421717-3 (Version None)
Quarter: 2009Q4

REPORT INFORMATION
  Report Type: 
  Country: None (occurrence: None)
  Receive Date: 20091030
  Receipt Date: 20091026
  Transmission Date: 20100525
  Serious: Yes (Death)
  Sender: FDA-Public Use
  Company Number: TR-ELI_LILLY_AND_COMPANY-TR200910006221

PATIENT
  Sex: Male

DRUGS (4)
  1. HUMULIN R [Suspect]
     Indication: TYPE 2 DIABETES MELLITUS
     Dosage: 6 IU, EACH MORNING
     Route: 058
     Dates: start: 20090101
  2. HUMULIN R [Suspect]
     Dosage: 12 IU, AT NOON
     Route: 058
     Dates: start: 20090101
  3. HUMULIN R [Suspect]
     Dosage: 12 IU, EACH EVENING
     Route: 058
     Dates: start: 20090101
  4. HUMULIN N [Suspect]
     Indication: TYPE 2 DIABETES MELLITUS
     Dosage: 6 IU, DAILY (1/D) - EACH NI
     Route: 058
     Dates: start: 20090101

REACTIONS (1)
  - MYOCARDIAL INFARCTION [None]
